FAERS Safety Report 22389583 (Version 1)
Quarter: 2023Q2

REPORT INFORMATION
  Report Type: Spontaneous
  Country: ES (occurrence: ES)
  Receive Date: 20230531
  Receipt Date: 20230531
  Transmission Date: 20230722
  Serious: Yes (Other)
  Sender: FDA-Public Use
  Company Number: None

PATIENT
  Age: 75 Year
  Sex: Male

DRUGS (2)
  1. PEMETREXED [Suspect]
     Active Substance: PEMETREXED
     Indication: Mesothelioma malignant
     Dosage: UNK UNK, UNKNOWN
     Route: 042
     Dates: start: 20230413, end: 20230413
  2. CARBOPLATIN [Suspect]
     Active Substance: CARBOPLATIN
     Indication: Mesothelioma malignant
     Dosage: 10 MG/ML CONCENTRADO PARA SOLUCION PARA PERFUSION EFG, 1 VIAL DE 15 ML
     Route: 042
     Dates: start: 20230413, end: 20230413

REACTIONS (1)
  - Urticaria [Recovered/Resolved]

NARRATIVE: CASE EVENT DATE: 20230413
